FAERS Safety Report 11118102 (Version 2)
Quarter: 2018Q2

REPORT INFORMATION
  Report Type: Spontaneous
  Country: FR (occurrence: FR)
  Receive Date: 20150518
  Receipt Date: 20180613
  Transmission Date: 20180711
  Serious: Yes (Death, Hospitalization, Other)
  Sender: FDA-Public Use
  Company Number: FR-ACCORD-030650

PATIENT
  Age: 71 Year
  Sex: Male

DRUGS (3)
  1. TACROLIMUS. [Suspect]
     Active Substance: TACROLIMUS
     Indication: RENAL TRANSPLANT
  2. MYCOPHENOLIC ACID. [Suspect]
     Active Substance: MYCOPHENOLIC ACID
     Indication: RENAL TRANSPLANT
  3. PREDNISONE. [Suspect]
     Active Substance: PREDNISONE
     Indication: RENAL TRANSPLANT
     Dosage: DOSE TAPERERD TO 5 MG/D.
     Route: 048

REACTIONS (8)
  - Renal failure [Unknown]
  - Fungal infection [Fatal]
  - Haematoma [Fatal]
  - Cellulitis [Fatal]
  - Urinary tract infection [Unknown]
  - Septic shock [Fatal]
  - Bacterial sepsis [Fatal]
  - Anaemia [Unknown]
